FAERS Safety Report 4981145-4 (Version None)
Quarter: 2006Q1

REPORT INFORMATION
  Report Type: 
  Country: None (occurrence: None)
  Receive Date: 20060227
  Receipt Date: 20050715
  Transmission Date: 20060701
  Serious: Yes (Hospitalization)
  Sender: FDA-Public Use
  Company Number: WAES 0507USA02087

PATIENT
  Age: 59 Year
  Sex: Male

DRUGS (3)
  1. ZOCOR [Suspect]
     Dosage: 20 MG DAILY PO
     Route: 048
  2. ZOCOR [Suspect]
     Dosage: 150 MG DAILY PO
     Route: 048
  3. CADUET [Concomitant]

REACTIONS (2)
  - OVERDOSE [None]
  - PANCREATITIS [None]
